FAERS Safety Report 15656195 (Version 8)
Quarter: 2020Q3

REPORT INFORMATION
  Report Type: Spontaneous
  Country: US (occurrence: US)
  Receive Date: 20181126
  Receipt Date: 20200721
  Transmission Date: 20201102
  Serious: No
  Sender: FDA-Public Use
  Company Number: US-VERTEX PHARMACEUTICALS-2018-008522

PATIENT
  Age: 6 Year
  Sex: Male

DRUGS (2)
  1. ORKAMBI [Suspect]
     Active Substance: IVACAFTOR\LUMACAFTOR
     Indication: CYSTIC FIBROSIS
     Dosage: 2 DOSAGE FORM, BID (REGULAR)
     Route: 048
     Dates: start: 20181031, end: 201909
  2. CLINDAMYCIN. [Concomitant]
     Active Substance: CLINDAMYCIN
     Indication: COUGH
     Dosage: 14 DAYS

REACTIONS (13)
  - Sinus headache [Unknown]
  - Gastrointestinal bacterial overgrowth [Recovering/Resolving]
  - Cough [Unknown]
  - Inappropriate affect [Unknown]
  - Abdominal distension [Not Recovered/Not Resolved]
  - Helicobacter infection [Unknown]
  - Alanine aminotransferase increased [Recovered/Resolved]
  - Bruxism [Unknown]
  - Abdominal pain [Not Recovered/Not Resolved]
  - Nightmare [Unknown]
  - Weight gain poor [Recovering/Resolving]
  - Steatorrhoea [Not Recovered/Not Resolved]
  - Aspartate aminotransferase increased [Recovered/Resolved]

NARRATIVE: CASE EVENT DATE: 2018
